FAERS Safety Report 24841385 (Version 2)
Quarter: 2025Q1

REPORT INFORMATION
  Report Type: Spontaneous
  Country: JP (occurrence: JP)
  Receive Date: 20250114
  Receipt Date: 20250210
  Transmission Date: 20250409
  Serious: Yes (Other)
  Sender: ALEXION PHARMACEUTICALS
  Company Number: JP-ASTRAZENECA-250002886_013120_P_1

PATIENT
  Age: 56 Year

DRUGS (22)
  1. DURVALUMAB [Suspect]
     Active Substance: DURVALUMAB
     Indication: Bile duct cancer
  2. DURVALUMAB [Suspect]
     Active Substance: DURVALUMAB
  3. GEMCITABINE [Concomitant]
     Active Substance: GEMCITABINE
     Indication: Bile duct cancer
     Route: 065
  4. GEMCITABINE [Concomitant]
     Active Substance: GEMCITABINE
     Route: 065
  5. GEMCITABINE [Concomitant]
     Active Substance: GEMCITABINE
     Route: 065
  6. GEMCITABINE [Concomitant]
     Active Substance: GEMCITABINE
     Route: 065
  7. GEMCITABINE [Concomitant]
     Active Substance: GEMCITABINE
     Route: 065
  8. GEMCITABINE [Concomitant]
     Active Substance: GEMCITABINE
     Route: 065
  9. GEMCITABINE [Concomitant]
     Active Substance: GEMCITABINE
     Route: 065
  10. GEMCITABINE [Concomitant]
     Active Substance: GEMCITABINE
     Route: 065
  11. CISPLATIN [Concomitant]
     Active Substance: CISPLATIN
     Indication: Bile duct cancer
     Route: 065
  12. CISPLATIN [Concomitant]
     Active Substance: CISPLATIN
     Route: 065
  13. CISPLATIN [Concomitant]
     Active Substance: CISPLATIN
     Route: 065
  14. CISPLATIN [Concomitant]
     Active Substance: CISPLATIN
     Route: 065
  15. CISPLATIN [Concomitant]
     Active Substance: CISPLATIN
     Route: 065
  16. CISPLATIN [Concomitant]
     Active Substance: CISPLATIN
     Route: 065
  17. CISPLATIN [Concomitant]
     Active Substance: CISPLATIN
     Route: 065
  18. CISPLATIN [Concomitant]
     Active Substance: CISPLATIN
     Route: 065
  19. AMLODIPINE [Concomitant]
     Active Substance: AMLODIPINE BESYLATE
  20. AMLODIPINE [Concomitant]
     Active Substance: AMLODIPINE BESYLATE
  21. URSODIOL [Concomitant]
     Active Substance: URSODIOL
  22. URSODIOL [Concomitant]
     Active Substance: URSODIOL

REACTIONS (1)
  - Neutrophil count decreased [Unknown]
